FAERS Safety Report 9195366 (Version 1)
Quarter: 2013Q1

REPORT INFORMATION
  Report Type: Spontaneous
  Country: None (occurrence: US)
  Receive Date: 20130328
  Receipt Date: 20130328
  Transmission Date: 20140127
  Serious: No
  Sender: FDA-Public Use
  Company Number: US-ALLERGAN-1300251US

PATIENT
  Age: 75 Year
  Sex: Male

DRUGS (3)
  1. LUMIGAN? 0.01% [Suspect]
     Indication: GLAUCOMA
     Dosage: 2 GTT, QHS
     Route: 047
  2. LOSARTAN [Concomitant]
     Indication: HYPERTENSION
     Dosage: UNK
     Route: 048
  3. HYDROCHLOROTHIAZIDE [Concomitant]
     Indication: HYPERTENSION
     Dosage: UNK

REACTIONS (4)
  - Muscle twitching [Recovered/Resolved]
  - Scleral hyperaemia [Recovered/Resolved]
  - Eye irritation [Recovered/Resolved]
  - Eye pruritus [Recovered/Resolved]
